FAERS Safety Report 22140064 (Version 1)
Quarter: 2023Q1

REPORT INFORMATION
  Report Type: Spontaneous
  Country: US (occurrence: None)
  Receive Date: 20230324
  Receipt Date: 20230324
  Transmission Date: 20230417
  Serious: Yes (Hospitalization)
  Sender: FDA-Public Use
  Company Number: None

PATIENT
  Age: 4 Year
  Sex: Male

DRUGS (1)
  1. DRONABINOL [Suspect]
     Active Substance: DRONABINOL

REACTIONS (3)
  - Loss of consciousness [None]
  - Accidental exposure to product by child [None]
  - Accidental overdose [None]

NARRATIVE: CASE EVENT DATE: 20230322
